FAERS Safety Report 8978774 (Version 1)
Quarter: 2012Q4

REPORT INFORMATION
  Report Type: 
  Country: US (occurrence: US)
  Receive Date: 20121220
  Receipt Date: 20121220
  Transmission Date: 20130627
  Serious: No
  Sender: FDA-Public Use
  Company Number: US-PFIZER INC-2012322020

PATIENT
  Age: 74 Year
  Sex: Female
  Weight: 64.4 kg

DRUGS (2)
  1. CELEBREX [Suspect]
     Indication: OSTEOARTHRITIS
     Dosage: 200 mg, 1x/day
     Route: 048
     Dates: start: 20120911, end: 20121216
  2. VITAMIN D3 [Concomitant]
     Indication: VITAMIN D DECREASED
     Dosage: UNK

REACTIONS (5)
  - Erythema of eyelid [Recovering/Resolving]
  - Eyelids pruritus [Recovering/Resolving]
  - Laceration [Recovering/Resolving]
  - Eyelid irritation [Recovering/Resolving]
  - Pruritus [Recovering/Resolving]
